FAERS Safety Report 9962598 (Version 1)
Quarter: 2014Q1

REPORT INFORMATION
  Report Type: Report from Study
  Country: US (occurrence: US)
  Receive Date: 20140305
  Receipt Date: 20140305
  Transmission Date: 20141002
  Serious: No
  Sender: FDA-Public Use
  Company Number: US-ABBVIE-13P-163-1112299-00

PATIENT
  Age: 61 Year
  Sex: Male

DRUGS (4)
  1. HUMIRA [Suspect]
     Indication: CROHN^S DISEASE
     Dosage: 2ND LOADING DOSE
     Dates: start: 20130531
  2. PENTAGRIN [Concomitant]
     Indication: ABDOMINAL DISCOMFORT
  3. PENTAGRIN [Concomitant]
     Indication: NAUSEA
  4. LISINOPRIL [Concomitant]
     Indication: HYPERTENSION
     Dosage: 20MG DAILY

REACTIONS (4)
  - Pain of skin [Not Recovered/Not Resolved]
  - Haematochezia [Not Recovered/Not Resolved]
  - Rash [Not Recovered/Not Resolved]
  - Rash [Not Recovered/Not Resolved]
